FAERS Safety Report 15730666 (Version 2)
Quarter: 2019Q2

REPORT INFORMATION
  Report Type: Spontaneous
  Country: US (occurrence: US)
  Receive Date: 20181217
  Receipt Date: 20190426
  Transmission Date: 20190711
  Serious: Yes (Other)
  Sender: FDA-Public Use
  Company Number: US-SA-2018SA339938

PATIENT
  Age: 62 Year
  Sex: Female
  Weight: 54 kg

DRUGS (2)
  1. TAXOTERE [Suspect]
     Active Substance: DOCETAXEL
     Indication: BREAST CANCER FEMALE
     Dosage: EVERY DAY FOR 5 DAYS AT A TIME
     Route: 042
     Dates: start: 201202, end: 201202
  2. TAXOTERE [Suspect]
     Active Substance: DOCETAXEL
     Dosage: EVERY DAY FOR 5 DAYS AT A TIME
     Route: 042
     Dates: start: 201206, end: 201206

REACTIONS (1)
  - Alopecia [Recovering/Resolving]

NARRATIVE: CASE EVENT DATE: 201202
